FAERS Safety Report 5193188-9 (Version None)
Quarter: 2006Q4

REPORT INFORMATION
  Report Type: 
  Country: None (occurrence: None)
  Receive Date: 20061221
  Receipt Date: 20061208
  Transmission Date: 20070319
  Serious: Yes (Life-Threatening)
  Sender: FDA-Public Use
  Company Number: 2006US002558

PATIENT
  Age: 79 Year
  Sex: Male
  Weight: 50 kg

DRUGS (5)
  1. ADENOSCAN [Suspect]
     Indication: SCAN MYOCARDIAL PERFUSION
     Dosage: 120 RK/MIN, IV NOS
     Route: 042
     Dates: start: 20061025, end: 20061025
  2. TECHNETIUM (99M TC) DMSA (TECHNETIUM (9M TC) DMSA) [Concomitant]
  3. RHUBARB DRY EXTRACT (RHEUM PALMATUM DRY EXTRACT) [Concomitant]
  4. MAGNESIUM OXIDE (MAGNESIUM OXIDE) [Concomitant]
  5. DAIO-KANZO-TO (GLYCYRRHIAZA GLABRA, RHEUM PALMATUM) [Concomitant]

REACTIONS (6)
  - ADAMS-STOKES SYNDROME [None]
  - ASTHENIA [None]
  - ATRIOVENTRICULAR BLOCK SECOND DEGREE [None]
  - LOSS OF CONSCIOUSNESS [None]
  - MUSCULAR WEAKNESS [None]
  - TRANSIENT ISCHAEMIC ATTACK [None]
